FAERS Safety Report 9651397 (Version 2)
Quarter: 2013Q4

REPORT INFORMATION
  Report Type: Spontaneous
  Country: VE (occurrence: VE)
  Receive Date: 20131029
  Receipt Date: 20131029
  Transmission Date: 20140711
  Serious: Yes (Hospitalization, Other)
  Sender: FDA-Public Use
  Company Number: PHHY2013VE117093

PATIENT
  Age: 69 Year
  Sex: Female

DRUGS (9)
  1. FORADIL INHAL. CAPS. [Suspect]
     Indication: CHRONIC OBSTRUCTIVE PULMONARY DISEASE
     Dosage: 1 DF, Q12H
     Dates: start: 2009, end: 20130420
  2. FORADIL INHAL. CAPS. [Suspect]
     Dosage: 1 DF, Q12H
     Dates: start: 201307
  3. FORADIL INHAL. CAPS. [Suspect]
     Dosage: UNK
     Dates: start: 20131016
  4. MIFLONIDE [Suspect]
     Indication: CHRONIC OBSTRUCTIVE PULMONARY DISEASE
     Dosage: 1 DF, Q12H
     Dates: start: 2009, end: 20130420
  5. MIFLONIDE [Suspect]
     Dosage: 1 DF, Q12H
     Dates: start: 201307
  6. MIFLONIDE [Suspect]
     Dosage: UNK
     Dates: start: 20131016
  7. AMLOPIN [Concomitant]
     Indication: HYPERTENSION
     Dosage: UNK
     Route: 048
     Dates: end: 2013
  8. NORVASC [Concomitant]
     Indication: HYPERTENSION
     Dosage: UNK
     Route: 048
     Dates: end: 2013
  9. ATACAND [Concomitant]
     Indication: HYPERTENSION
     Dosage: UNK
     Route: 048
     Dates: start: 201304

REACTIONS (7)
  - Influenza [Recovered/Resolved]
  - Condition aggravated [Recovered/Resolved]
  - Fatigue [Recovered/Resolved]
  - Pneumonia [Recovered/Resolved]
  - Arrhythmia [Recovering/Resolving]
  - Anaemia [Recovered/Resolved]
  - Respiratory failure [Recovered/Resolved]
